FAERS Safety Report 5965953-9 (Version None)
Quarter: 2008Q4

REPORT INFORMATION
  Report Type: 
  Country: None (occurrence: None)
  Receive Date: 20081125
  Receipt Date: 20081114
  Transmission Date: 20090506
  Serious: No
  Sender: FDA-Public Use
  Company Number: CA-ELI_LILLY_AND_COMPANY-CA200811003416

PATIENT
  Sex: Male

DRUGS (2)
  1. CIALIS [Suspect]
     Indication: ERECTILE DYSFUNCTION
     Dosage: 10 MG, AS NEEDED
     Route: 048
  2. SYNTHROID [Concomitant]
     Indication: HYPOTHYROIDISM
     Dosage: 0.137 MG, DAILY (1/D)
     Route: 048

REACTIONS (1)
  - PHOTOPHOBIA [None]
